FAERS Safety Report 9846957 (Version 2)
Quarter: 2014Q1

REPORT INFORMATION
  Report Type: Spontaneous
  Country: GB (occurrence: GB)
  Receive Date: 20140127
  Receipt Date: 20140328
  Transmission Date: 20141002
  Serious: Yes (Other)
  Sender: FDA-Public Use
  Company Number: GB-ELI_LILLY_AND_COMPANY-GB201401006185

PATIENT
  Age: 36 Year
  Sex: Male

DRUGS (3)
  1. STRATTERA [Suspect]
     Indication: ATTENTION DEFICIT/HYPERACTIVITY DISORDER
     Dosage: 80 MG, EACH MORNING
     Route: 048
     Dates: start: 20131224
  2. VENLAFAXINE [Concomitant]
     Indication: DEPRESSION
     Dosage: 225 MG, QD
     Route: 065
  3. VENLAFAXINE [Concomitant]
     Dosage: 150 MG, QD

REACTIONS (3)
  - Self-injurious ideation [Recovered/Resolved]
  - Depressed mood [Recovered/Resolved]
  - Drug ineffective [Recovered/Resolved]
